FAERS Safety Report 24218932 (Version 4)
Quarter: 2025Q1

REPORT INFORMATION
  Report Type: Spontaneous
  Country: US (occurrence: US)
  Receive Date: 20240816
  Receipt Date: 20250131
  Transmission Date: 20250409
  Serious: Yes (Other)
  Sender: SANOFI AVENTIS
  Company Number: US-SA-SAC20240813000931

PATIENT
  Age: 16 Year
  Sex: Female
  Weight: 80.55 kg

DRUGS (12)
  1. DUPIXENT [Suspect]
     Active Substance: DUPILUMAB
     Indication: Asthma
     Dosage: 300 MG, QOW
     Route: 058
     Dates: start: 202405
  2. DUPIXENT [Suspect]
     Active Substance: DUPILUMAB
     Indication: Asthma
     Dosage: 300 MG, QOW
     Route: 058
  3. PROPRANOLOL HYDROCHLORIDE [Suspect]
     Active Substance: PROPRANOLOL HYDROCHLORIDE
  4. MAGNESIUM [Concomitant]
     Active Substance: MAGNESIUM
  5. EPINEPHRINE [Concomitant]
     Active Substance: EPINEPHRINE
  6. EXCEDRIN EXTRA STRENGTH [Concomitant]
     Active Substance: ACETAMINOPHEN\ASPIRIN\CAFFEINE
  7. ALBUTEROL SULFATE [Concomitant]
     Active Substance: ALBUTEROL SULFATE
  8. SYMBICORT [Concomitant]
     Active Substance: BUDESONIDE\FORMOTEROL FUMARATE DIHYDRATE
  9. DIETARY SUPPLEMENT\PROBIOTICS [Concomitant]
     Active Substance: DIETARY SUPPLEMENT\PROBIOTICS NOS
  10. MAGNESIUM [MAGNESIUM CHELATE] [Concomitant]
  11. EPINEPHRINE [EPINEPHRINE HYDROCHLORIDE] [Concomitant]
  12. VITAMIN D4 [Concomitant]
     Active Substance: VITAMIN D4

REACTIONS (5)
  - Vagus nerve disorder [Unknown]
  - Streptococcal infection [Unknown]
  - Abdominal pain upper [Unknown]
  - Depression [Unknown]
  - Injection site pain [Unknown]
